FAERS Safety Report 17328019 (Version 6)
Quarter: 2020Q2

REPORT INFORMATION
  Report Type: Spontaneous
  Country: US (occurrence: US)
  Receive Date: 20200127
  Receipt Date: 20200610
  Transmission Date: 20200713
  Serious: No
  Sender: FDA-Public Use
  Company Number: US-PFIZER INC-2020035736

PATIENT
  Age: 67 Year
  Sex: Male
  Weight: 106 kg

DRUGS (11)
  1. SULFAMETH/TRIMETH [Concomitant]
     Active Substance: SULFAMETHOXAZOLE\TRIMETHOPRIM
     Dosage: UNK, 400-80 MG, 3X/WEEK
     Dates: start: 201605
  2. TACRO [Concomitant]
     Active Substance: TACROLIMUS
     Dosage: UNK UNK, DAILY (0.5MG- 1DAILY)
     Dates: start: 201605
  3. LASIX [Concomitant]
     Active Substance: FUROSEMIDE
     Dosage: 20 MG, DAILY
  4. VITAMIN D [Concomitant]
     Active Substance: VITAMIN D NOS
     Dosage: UNK
  5. ROSUVASTATIN. [Concomitant]
     Active Substance: ROSUVASTATIN
     Dosage: UNK
  6. CARVEDILOL. [Concomitant]
     Active Substance: CARVEDILOL
     Dosage: UNK
  7. RAPAMUNE [Suspect]
     Active Substance: SIROLIMUS
     Indication: HEART TRANSPLANT
     Dosage: 0.5 MG, 1X/DAY (0.5MG ONCE A DAY BY MOUTH)
     Route: 048
     Dates: start: 2019
  8. RAPAMUNE [Suspect]
     Active Substance: SIROLIMUS
     Dosage: 0.5 MG, 1X/DAY (0.5MG ONCE A DAY BY MOUTH)
     Route: 048
  9. RAPAMUNE [Suspect]
     Active Substance: SIROLIMUS
     Dosage: 0.5 MG, DAILY
     Route: 048
     Dates: start: 201904
  10. RAPAMUNE [Suspect]
     Active Substance: SIROLIMUS
     Dosage: 0.5 MG, ALTERNATE DAY[DECREASED TO EVERY OTHER DAY]
     Route: 048
  11. LOSARTAN. [Concomitant]
     Active Substance: LOSARTAN
     Dosage: UNK

REACTIONS (9)
  - Diarrhoea [Recovered/Resolved]
  - Off label use [Recovered/Resolved]
  - Back pain [Not Recovered/Not Resolved]
  - Infection [Recovered/Resolved]
  - Acne [Not Recovered/Not Resolved]
  - Product use in unapproved indication [Recovered/Resolved]
  - Product dispensing error [Recovered/Resolved]
  - Visual impairment [Unknown]
  - Peripheral swelling [Unknown]

NARRATIVE: CASE EVENT DATE: 2019
